FAERS Safety Report 19958631 (Version 2)
Quarter: 2021Q4

REPORT INFORMATION
  Report Type: Spontaneous
  Country: CA (occurrence: CA)
  Receive Date: 20211015
  Receipt Date: 20211230
  Transmission Date: 20220303
  Serious: Yes (Hospitalization, Other)
  Sender: FDA-Public Use
  Company Number: CA-MYLANLABS-2021M1072564

PATIENT
  Age: 51 Year
  Sex: Male

DRUGS (10)
  1. CLOZAPINE [Interacting]
     Active Substance: CLOZAPINE
     Indication: Schizoaffective disorder
     Dosage: 300 MILLIGRAM, QD
     Route: 065
  2. CLOZAPINE [Interacting]
     Active Substance: CLOZAPINE
     Dosage: 150 MILLIGRAM
     Route: 065
  3. CLOZAPINE [Interacting]
     Active Substance: CLOZAPINE
     Dosage: 500 MILLIGRAM, QD
     Route: 065
  4. DIVALPROEX SODIUM [Interacting]
     Active Substance: DIVALPROEX SODIUM
     Indication: Product used for unknown indication
     Dosage: UNK
     Route: 065
  5. FENOFIBRATE [Interacting]
     Active Substance: FENOFIBRATE
     Indication: Product used for unknown indication
     Dosage: UNK
     Route: 065
  6. METFORMIN HYDROCHLORIDE [Interacting]
     Active Substance: METFORMIN HYDROCHLORIDE
     Indication: Product used for unknown indication
     Dosage: UNK
     Route: 065
  7. PANTOPRAZOLE [Interacting]
     Active Substance: PANTOPRAZOLE
     Indication: Product used for unknown indication
     Dosage: UNK
     Route: 065
  8. LINAGLIPTIN [Interacting]
     Active Substance: LINAGLIPTIN
     Indication: Product used for unknown indication
     Dosage: UNK
     Route: 065
  9. DEPAKOTE [Suspect]
     Active Substance: DIVALPROEX SODIUM
     Indication: Product used for unknown indication
     Dosage: UNK
  10. TOZINAMERAN [Suspect]
     Active Substance: TOZINAMERAN
     Indication: Product used for unknown indication
     Dosage: UNK

REACTIONS (17)
  - Toxicity to various agents [Recovered/Resolved]
  - Condition aggravated [Recovered/Resolved]
  - Lymphocyte count decreased [Recovered/Resolved]
  - Delirium [Recovered/Resolved]
  - Neutrophil count increased [Recovered/Resolved]
  - Monocyte count increased [Recovered/Resolved]
  - Sedation complication [Recovered/Resolved]
  - C-reactive protein increased [Recovered/Resolved]
  - Pneumonia [Recovered/Resolved]
  - Incontinence [Recovered/Resolved]
  - Atelectasis [Recovered/Resolved]
  - Drug level increased [Recovered/Resolved]
  - Fall [Recovered/Resolved]
  - Hydrocephalus [Recovered/Resolved]
  - Affect lability [Recovered/Resolved]
  - Drug interaction [Recovered/Resolved]
  - Antipsychotic drug level increased [Recovered/Resolved]
